FAERS Safety Report 9123959 (Version 1)
Quarter: 2013Q1

REPORT INFORMATION
  Report Type: Spontaneous
  Country: US (occurrence: US)
  Receive Date: 20130116
  Receipt Date: 20130116
  Transmission Date: 20140127
  Serious: Yes (Other)
  Sender: FDA-Public Use
  Company Number: US-BAYER-2013-004517

PATIENT
  Age: 33 Year
  Sex: Female
  Weight: 87.08 kg

DRUGS (17)
  1. YAZ [Suspect]
  2. YASMIN [Suspect]
     Indication: CONTRACEPTION
  3. RISPERDAL [Concomitant]
     Indication: ANXIETY DISORDER
     Dosage: 1 MG, UNK
  4. ADDERALL XR [Concomitant]
     Indication: ANXIETY DISORDER
     Dosage: 30 MG, UNK
  5. LEXAPRO [Concomitant]
     Indication: ANXIETY DISORDER
  6. LEXAPRO [Concomitant]
     Indication: PAIN PROPHYLAXIS
  7. ZOLPIDEM TARTRATE [Concomitant]
     Dosage: 10 MG, UNK
  8. ALPRAZOLAM [Concomitant]
     Dosage: 0.5 MG, UNK
  9. KETOROLAC [Concomitant]
     Dosage: 30 MG, UNK
     Route: 042
  10. METOCLOPRAMIDE [Concomitant]
     Dosage: 5 MG, UNK
     Route: 042
  11. EXCEDRIN MIGRAINE [Concomitant]
  12. ADVIL [Concomitant]
  13. RELPAX [Concomitant]
     Indication: HEADACHE
  14. ELAVIL [Concomitant]
  15. IBUPROFEN [Concomitant]
     Dosage: 600 MG, TID
  16. IMITREX [Concomitant]
  17. ADENOSINE [Concomitant]

REACTIONS (2)
  - Cerebral venous thrombosis [Recovering/Resolving]
  - Cerebral venous thrombosis [Recovering/Resolving]
